FAERS Safety Report 11267118 (Version 2)
Quarter: 2015Q3

REPORT INFORMATION
  Report Type: Spontaneous
  Country: US (occurrence: US)
  Receive Date: 20150713
  Receipt Date: 20150923
  Transmission Date: 20151125
  Serious: Yes (Other)
  Sender: FDA-Public Use
  Company Number: US-PFIZER INC-2015232397

PATIENT
  Age: 65 Year
  Sex: Female
  Weight: 57 kg

DRUGS (3)
  1. SYNTHROID [Concomitant]
     Active Substance: LEVOTHYROXINE SODIUM
  2. XALATAN [Suspect]
     Active Substance: LATANOPROST
     Indication: GLAUCOMA
     Dosage: ONE DROP TO BOTH EYES, EVERY EVENING
     Route: 047
     Dates: start: 2005
  3. XALATAN [Suspect]
     Active Substance: LATANOPROST
     Dosage: 1 DROP TO RIGHT EYE, ONCE IN THE EVENING
     Route: 047
     Dates: end: 201501

REACTIONS (9)
  - Eye colour change [Unknown]
  - Growth of eyelashes [Not Recovered/Not Resolved]
  - Intentional product misuse [Recovered/Resolved]
  - Visual acuity reduced [Unknown]
  - Condition aggravated [Not Recovered/Not Resolved]
  - Skin discolouration [Not Recovered/Not Resolved]
  - Glaucoma [Not Recovered/Not Resolved]
  - Visual field defect [Unknown]
  - Drug ineffective [Not Recovered/Not Resolved]
